FAERS Safety Report 6744666-X (Version None)
Quarter: 2010Q2

REPORT INFORMATION
  Report Type: 
  Country: None (occurrence: None)
  Receive Date: 20100527
  Receipt Date: 20100517
  Transmission Date: 20101027
  Serious: Yes (Other)
  Sender: FDA-Public Use
  Company Number: US-WYE-H15192510

PATIENT

DRUGS (1)
  1. EFFEXOR XR [Suspect]

REACTIONS (2)
  - BLINDNESS [None]
  - DIPLOPIA [None]
